FAERS Safety Report 9202322 (Version 1)
Quarter: 2013Q1

REPORT INFORMATION
  Report Type: Spontaneous
  Country: US (occurrence: None)
  Receive Date: 20130329
  Receipt Date: 20130329
  Transmission Date: 20140127
  Serious: No
  Sender: FDA-Public Use
  Company Number: None

PATIENT
  Age: 79 Year
  Sex: Male
  Weight: 83.92 kg

DRUGS (1)
  1. FLUOROURACIL [Suspect]
     Indication: SKIN CANCER
     Dosage: THIN LAYER TO FACE /+NECK FOR 2 WKS AM + PM RUB ON
     Route: 061
     Dates: start: 20130304, end: 20130313

REACTIONS (10)
  - Pruritus [None]
  - Swelling [None]
  - Pain [None]
  - Lip swelling [None]
  - Oedema mouth [None]
  - Lip haemorrhage [None]
  - Gingival swelling [None]
  - Temperature intolerance [None]
  - Insomnia [None]
  - Erythema [None]
